FAERS Safety Report 12074626 (Version 7)
Quarter: 2022Q3

REPORT INFORMATION
  Report Type: Report from Study
  Country: US (occurrence: US)
  Receive Date: 20160212
  Receipt Date: 20220824
  Transmission Date: 20221027
  Serious: Yes (Other)
  Sender: FDA-Public Use
  Company Number: US-JAZZ-JPI-P-032109

PATIENT
  Sex: Female

DRUGS (11)
  1. XYREM [Suspect]
     Active Substance: SODIUM OXYBATE
     Indication: Sleep disorder
     Dosage: 3.5 GRAM, BID
     Route: 048
     Dates: start: 200408, end: 2005
  2. XYREM [Suspect]
     Active Substance: SODIUM OXYBATE
     Dosage: 3.5 GRAM, BID
     Route: 048
     Dates: start: 200604, end: 2006
  3. XYREM [Suspect]
     Active Substance: SODIUM OXYBATE
     Dosage: 4 GRAM
     Route: 048
     Dates: start: 200702, end: 200707
  4. XYREM [Suspect]
     Active Substance: SODIUM OXYBATE
     Dosage: 4 GRAM SECOND DOSE
     Route: 048
     Dates: start: 200702, end: 200707
  5. XYREM [Suspect]
     Active Substance: SODIUM OXYBATE
     Dosage: 2 GRAM THIRED DOES
     Route: 048
     Dates: start: 200702, end: 200707
  6. XYREM [Suspect]
     Active Substance: SODIUM OXYBATE
     Dosage: DOSE ADJUSTMENT
  7. XYREM [Suspect]
     Active Substance: SODIUM OXYBATE
     Dosage: 3.5 GRAM, TID
     Route: 048
     Dates: start: 201405
  8. XYREM [Suspect]
     Active Substance: SODIUM OXYBATE
     Dosage: DOSE ADJUSTMENT
  9. DEPAKOTE [Suspect]
     Active Substance: DIVALPROEX SODIUM
  10. WELLBUTRIN [Suspect]
     Active Substance: BUPROPION HYDROCHLORIDE
     Indication: Product used for unknown indication
  11. SYNTHROID [Concomitant]
     Active Substance: LEVOTHYROXINE SODIUM
     Indication: Product used for unknown indication
     Dosage: 0000
     Dates: start: 20190301

REACTIONS (6)
  - Atrioventricular node dysfunction [Unknown]
  - Fibromuscular dysplasia [Unknown]
  - Chronic kidney disease [Unknown]
  - Renal artery stenosis [Recovered/Resolved]
  - Weight increased [Recovered/Resolved]
  - Urticaria [Unknown]
